FAERS Safety Report 20520070 (Version 1)
Quarter: 2022Q1

REPORT INFORMATION
  Report Type: Other
  Country: None (occurrence: GB)
  Receive Date: 20220225
  Receipt Date: 20220225
  Transmission Date: 20220423
  Serious: No
  Sender: FDA-Public Use
  Company Number: GB-Air Products and Chemicals, Inc. -2126224

PATIENT
  Age: 29 Year
  Sex: Male

DRUGS (1)
  1. OXYGEN [Suspect]
     Active Substance: OXYGEN

REACTIONS (3)
  - Abdominal pain upper [None]
  - Cough [None]
  - Back pain [None]
